FAERS Safety Report 13201596 (Version 1)
Quarter: 2017Q1

REPORT INFORMATION
  Report Type: Report from Study
  Country: None (occurrence: US)
  Receive Date: 20170209
  Receipt Date: 20170209
  Transmission Date: 20170428
  Serious: Yes (Hospitalization)
  Sender: FDA-Public Use
  Company Number: US-ABBVIE-16K-163-1813836-00

PATIENT
  Age: 10 Year
  Sex: Female

DRUGS (1)
  1. HUMIRA [Suspect]
     Active Substance: ADALIMUMAB
     Indication: CROHN^S DISEASE
     Dosage: DAY ONE
     Route: 058
     Dates: start: 20161208, end: 20161208

REACTIONS (7)
  - Abdominal pain upper [Not Recovered/Not Resolved]
  - Escherichia infection [Recovering/Resolving]
  - Gastrointestinal injury [Recovering/Resolving]
  - Malaise [Not Recovered/Not Resolved]
  - Road traffic accident [Recovered/Resolved]
  - Faeces soft [Not Recovered/Not Resolved]
  - Activities of daily living impaired [Not Recovered/Not Resolved]

NARRATIVE: CASE EVENT DATE: 201612
